FAERS Safety Report 11777431 (Version 1)
Quarter: 2015Q4

REPORT INFORMATION
  Report Type: Spontaneous
  Country: US (occurrence: None)
  Receive Date: 20151124
  Receipt Date: 20151124
  Transmission Date: 20160304
  Serious: Yes (Life-Threatening, Hospitalization)
  Sender: FDA-Public Use
  Company Number: None

PATIENT
  Age: 89 Year
  Sex: Female
  Weight: 64 kg

DRUGS (23)
  1. INSULIN LISPRO (HUMALOG) [Concomitant]
  2. LIDOCAINE (LIDODERM) [Concomitant]
  3. XANAX [Concomitant]
     Active Substance: ALPRAZOLAM
  4. TYLENOL [Concomitant]
     Active Substance: ACETAMINOPHEN
  5. TEMAZEPAM (RESTORIL) [Concomitant]
  6. EPOETIN ALFA (PROCRIT, EPOGEN) [Concomitant]
  7. KLOR-CON [Concomitant]
     Active Substance: POTASSIUM CHLORIDE
  8. BLOOD GLUCOSE MONITORING SUPPL (BLOOD GLUCOSE METER) KIT [Concomitant]
  9. WHEAT DEXTRIN (BENEFIBER DRINK MIX) [Concomitant]
  10. LASIX [Concomitant]
     Active Substance: FUROSEMIDE
  11. WARFARIN 3 MG TABLETS [Suspect]
     Active Substance: WARFARIN
     Indication: ATRIAL FIBRILLATION
     Route: 048
  12. LIPITOR [Concomitant]
     Active Substance: ATORVASTATIN CALCIUM
  13. SENNOSIDES (SENNA) [Concomitant]
  14. ASPIRIN 81 MG [Concomitant]
     Active Substance: ASPIRIN
  15. LANTUS [Concomitant]
     Active Substance: INSULIN GLARGINE
  16. SINEMET [Concomitant]
     Active Substance: CARBIDOPA\LEVODOPA
  17. NEXIUM [Concomitant]
     Active Substance: ESOMEPRAZOLE MAGNESIUM
  18. SUCRALFATE (CARAFATE) [Concomitant]
  19. METHYLPHENIDATE (RITALIN) [Concomitant]
  20. GLUCOSE BLOOD (ONE TOUCH ULTRA TEST) [Concomitant]
  21. LOSARTAN (COZAAR) [Concomitant]
  22. CARBOXYMETHYLCELLULOSE (REFRESH PLUS) [Concomitant]
  23. METOPROLOL (LOPRESSOR) [Concomitant]

REACTIONS (6)
  - Faeces discoloured [None]
  - Dyspnoea [None]
  - Asthenia [None]
  - Haematuria [None]
  - International normalised ratio decreased [None]
  - Cerebrovascular accident [None]

NARRATIVE: CASE EVENT DATE: 20151107
